FAERS Safety Report 18164291 (Version 1)
Quarter: 2020Q3

REPORT INFORMATION
  Report Type: Spontaneous
  Country: US (occurrence: US)
  Receive Date: 20200818
  Receipt Date: 20200818
  Transmission Date: 20201103
  Serious: Yes (Other)
  Sender: FDA-Public Use
  Company Number: US-PFIZER INC-2020318410

PATIENT
  Age: 54 Year
  Sex: Female

DRUGS (1)
  1. IBRANCE [Suspect]
     Active Substance: PALBOCICLIB
     Indication: MYELODYSPLASTIC SYNDROME
     Dosage: 125 MG, CYCLIC (125 MG, QD (ONCE A DAY) FOR 21 DAYS AND Q (EVERY) 28 DAYS)
     Dates: start: 20200424, end: 2020

REACTIONS (3)
  - Product use in unapproved indication [Unknown]
  - Off label use [Unknown]
  - Neutropenia [Unknown]

NARRATIVE: CASE EVENT DATE: 2020
